FAERS Safety Report 10226640 (Version 2)
Quarter: 2014Q2

REPORT INFORMATION
  Report Type: Spontaneous
  Country: US (occurrence: US)
  Receive Date: 20140609
  Receipt Date: 20140609
  Transmission Date: 20141212
  Serious: Yes (Other)
  Sender: FDA-Public Use
  Company Number: US-RB-068377-14

PATIENT
  Age: 31 Year
  Sex: Female

DRUGS (1)
  1. SUBOXONE FILM [Suspect]
     Indication: PRODUCT USED FOR UNKNOWN INDICATION
     Dosage: SUBOXONE FILM
     Route: 065

REACTIONS (3)
  - Anal prolapse [Unknown]
  - Intestinal obstruction [Not Recovered/Not Resolved]
  - Constipation [Unknown]
